FAERS Safety Report 6729893-X (Version None)
Quarter: 2010Q2

REPORT INFORMATION
  Report Type: 
  Country: None (occurrence: None)
  Receive Date: 20100518
  Receipt Date: 20100504
  Transmission Date: 20101027
  Serious: Yes (Hospitalization)
  Sender: FDA-Public Use
  Company Number: PHHY2010US02975

PATIENT
  Sex: Male

DRUGS (2)
  1. GLEEVEC [Suspect]
     Dosage: 200 MG DAILY
     Route: 048
     Dates: start: 20090921, end: 20100218
  2. GLEEVEC [Suspect]
     Dosage: 200 MG DAILY
     Dates: start: 20100223

REACTIONS (8)
  - DRUG DOSE OMISSION [None]
  - LOCALISED OEDEMA [None]
  - OEDEMA PERIPHERAL [None]
  - SUBCLAVIAN VEIN THROMBOSIS [None]
  - SURGERY [None]
  - SWELLING [None]
  - SWELLING FACE [None]
  - THYROID NEOPLASM [None]
